FAERS Safety Report 5065273-3 (Version None)
Quarter: 2006Q3

REPORT INFORMATION
  Report Type: 
  Country: None (occurrence: None)
  Receive Date: 20060707
  Receipt Date: 20050706
  Transmission Date: 20061208
  Serious: Yes (Hospitalization)
  Sender: FDA-Public Use
  Company Number: SUS1-2005-00558

PATIENT
  Age: 22 Year
  Sex: Female

DRUGS (2)
  1. PENTASA [Suspect]
     Indication: INFLAMMATORY BOWEL DISEASE
     Dosage: ORAL
     Route: 048
     Dates: start: 20050411, end: 20050504
  2. BUDESONIDE [Concomitant]

REACTIONS (1)
  - PANCREATITIS ACUTE [None]
